FAERS Safety Report 4585080-5 (Version None)
Quarter: 2005Q1

REPORT INFORMATION
  Report Type: 
  Country: None (occurrence: None)
  Receive Date: 20050217
  Receipt Date: 20041222
  Transmission Date: 20050727
  Serious: No
  Sender: FDA-Public Use
  Company Number: US-GLAXOSMITHKLINE-A0538324A

PATIENT
  Age: 42 Year
  Sex: Male

DRUGS (2)
  1. WELLBUTRIN XL [Suspect]
     Indication: ILL-DEFINED DISORDER
     Dosage: 450MG PER DAY
     Route: 048
  2. SYNTHROID [Concomitant]

REACTIONS (1)
  - VISION BLURRED [None]
